FAERS Safety Report 7603601-2 (Version None)
Quarter: 2011Q3

REPORT INFORMATION
  Report Type: 
  Country: None (occurrence: None)
  Receive Date: 20110712
  Receipt Date: 20110707
  Transmission Date: 20111222
  Serious: No
  Sender: FDA-Public Use
  Company Number: US-PFIZER INC-2011155881

PATIENT
  Age: 27 Year
  Sex: Female

DRUGS (1)
  1. PRISTIQ [Suspect]
     Dosage: UNK

REACTIONS (3)
  - LIBIDO INCREASED [None]
  - ANORGASMIA [None]
  - INSOMNIA [None]
